FAERS Safety Report 8914959 (Version 3)
Quarter: 2013Q1

REPORT INFORMATION
  Report Type: Spontaneous
  Country: US (occurrence: US)
  Receive Date: 20121116
  Receipt Date: 20130110
  Transmission Date: 20140127
  Serious: Yes (Death, Hospitalization)
  Sender: FDA-Public Use
  Company Number: US-GILEAD-2012-0064627

PATIENT
  Age: 73 Year
  Sex: Male

DRUGS (1)
  1. LETAIRIS [Suspect]
     Indication: PRODUCT USED FOR UNKNOWN INDICATION
     Dosage: 5 MG, UNK
     Route: 048
     Dates: start: 20110627, end: 20121116

REACTIONS (10)
  - Death [Fatal]
  - Gangrene [Unknown]
  - Renal failure [Unknown]
  - Dialysis [Unknown]
  - Mechanical ventilation [Unknown]
  - Leg amputation [Unknown]
  - Cellulitis [Unknown]
  - Gastrointestinal tube insertion [Unknown]
  - Platelet count decreased [Unknown]
  - Blood pressure decreased [Unknown]
